FAERS Safety Report 22047342 (Version 1)
Quarter: 2023Q1

REPORT INFORMATION
  Report Type: Report from Study
  Country: US (occurrence: US)
  Receive Date: 20230301
  Receipt Date: 20230301
  Transmission Date: 20230418
  Serious: Yes (Hospitalization, Other)
  Sender: FDA-Public Use
  Company Number: US-ABBVIE-4283595

PATIENT
  Sex: Male

DRUGS (3)
  1. IMBRUVICA [Suspect]
     Active Substance: IBRUTINIB
     Indication: Chronic lymphocytic leukaemia
     Route: 048
     Dates: start: 20181130
  2. LISINOPRIL [Concomitant]
     Active Substance: LISINOPRIL
     Indication: Product used for unknown indication
     Dosage: INCREASED
  3. DILTIAZEM [Concomitant]
     Active Substance: DILTIAZEM
     Indication: Product used for unknown indication
     Dosage: DECREASED

REACTIONS (7)
  - Hypertension [Unknown]
  - Heart rate increased [Unknown]
  - Recurrent cancer [Unknown]
  - White blood cell count abnormal [Unknown]
  - Atrial fibrillation [Unknown]
  - Rheumatoid arthritis [Unknown]
  - C-reactive protein increased [Unknown]
